FAERS Safety Report 24217698 (Version 1)
Quarter: 2024Q3

REPORT INFORMATION
  Report Type: Spontaneous
  Country: CN (occurrence: CN)
  Receive Date: 20240816
  Receipt Date: 20240816
  Transmission Date: 20241017
  Serious: Yes (Other)
  Sender: BAXTER
  Company Number: None

PATIENT
  Age: 66 Year
  Sex: Female
  Weight: 54.6 kg

DRUGS (2)
  1. CYCLOPHOSPHAMIDE [Suspect]
     Active Substance: CYCLOPHOSPHAMIDE
     Indication: Immunosuppressant drug therapy
     Dosage: 0.4 G, ONE TIME IN ONE DAY DILUTED WITH 0.9% SODIUM CHLORIDE (NS) 250 ML
     Route: 041
     Dates: start: 20240727, end: 20240727
  2. SODIUM CHLORIDE [Suspect]
     Active Substance: SODIUM CHLORIDE
     Indication: Medication dilution
     Dosage: 250 ML (0.9%), ONE TIME IN ONE DAY, USED TO DILUTE CYCLOPHOSPHAMIDE 0.4 G
     Route: 041
     Dates: start: 20240727, end: 20240727

REACTIONS (1)
  - Rash erythematous [Recovering/Resolving]

NARRATIVE: CASE EVENT DATE: 20240727
